FAERS Safety Report 6349939-0 (Version None)
Quarter: 2009Q3

REPORT INFORMATION
  Report Type: 
  Country: None (occurrence: None)
  Receive Date: 20090911
  Receipt Date: 20090622
  Transmission Date: 20100115
  Serious: No
  Sender: FDA-Public Use
  Company Number: US-ABBOTT-06P-163-0344615-00

PATIENT
  Sex: Female
  Weight: 68.1 kg

DRUGS (5)
  1. HUMIRA [Suspect]
     Indication: RHEUMATOID ARTHRITIS
     Route: 058
     Dates: start: 20040101, end: 20060101
  2. HUMIRA [Suspect]
     Route: 058
     Dates: start: 20060301, end: 20060918
  3. HUMIRA [Suspect]
     Dosage: PEN DEVICE
     Route: 058
     Dates: start: 20060918
  4. TOPROL-XL [Concomitant]
     Indication: BLOOD PRESSURE
     Route: 048
  5. ORTHO-CEPT [Concomitant]
     Indication: CONTRACEPTION
     Dates: start: 19960101, end: 20060907

REACTIONS (4)
  - INCORRECT DOSE ADMINISTERED [None]
  - INJECTION SITE IRRITATION [None]
  - PARONYCHIA [None]
  - WRONG TECHNIQUE IN DRUG USAGE PROCESS [None]
